FAERS Safety Report 5451883-8 (Version None)
Quarter: 2007Q3

REPORT INFORMATION
  Report Type: 
  Country: None (occurrence: None)
  Receive Date: 20070912
  Receipt Date: 20070831
  Transmission Date: 20080115
  Serious: Yes (Death, Life-Threatening)
  Sender: FDA-Public Use
  Company Number: 2007JP003988

PATIENT
  Age: 70 Year
  Sex: Female
  Weight: 44 kg

DRUGS (11)
  1. PROGRAF [Suspect]
     Indication: RHEUMATOID ARTHRITIS
     Dosage: 1.5 MG, UID/QD, ORAL
     Route: 049
     Dates: start: 20070528, end: 20070820
  2. PREDNISOLONE [Concomitant]
  3. VOLTAREN [Concomitant]
  4. VOLTAREN CAPSULE [Concomitant]
  5. BACACIL (BACAMPICILLIN HYDROCHLORIDE) TABLET [Concomitant]
  6. PARIET (RABEPRAZOLE SODIUM) TABLET [Concomitant]
  7. ONEALFA (ALFACALCIDOL) TABLET [Concomitant]
  8. CYTOTEC [Concomitant]
  9. FOSAMAC (ALENDRONATE SODIUM) TABLET [Concomitant]
  10. DIOVAN [Concomitant]
  11. VOLTAREN [Concomitant]

REACTIONS (2)
  - BLOOD LACTATE DEHYDROGENASE INCREASED [None]
  - INTERSTITIAL LUNG DISEASE [None]
